FAERS Safety Report 8541328-3 (Version None)
Quarter: 2012Q3

REPORT INFORMATION
  Report Type: 
  Country: None (occurrence: None)
  Receive Date: 20120726
  Receipt Date: 20110923
  Transmission Date: 20120928
  Serious: No
  Sender: FDA-Public Use
  Company Number: US-ASTRAZENECA-2011SE57383

PATIENT
  Age: 33 Year
  Sex: Female
  Weight: 125 kg

DRUGS (1)
  1. SEROQUEL [Suspect]
     Indication: BIPOLAR DISORDER
     Route: 048
     Dates: start: 20090101

REACTIONS (3)
  - IMPULSE-CONTROL DISORDER [None]
  - CONFUSIONAL STATE [None]
  - HYPERSOMNIA [None]
